FAERS Safety Report 15340507 (Version 1)
Quarter: 2018Q3

REPORT INFORMATION
  Report Type: Spontaneous
  Country: US (occurrence: US)
  Receive Date: 20180831
  Receipt Date: 20180831
  Transmission Date: 20181010
  Serious: No
  Sender: FDA-Public Use
  Company Number: US-BAUSCH-BL-2018-023534

PATIENT
  Age: 54 Year
  Sex: Male

DRUGS (1)
  1. BRIMONIDINE TARTRATE. [Suspect]
     Active Substance: BRIMONIDINE TARTRATE
     Indication: GLAUCOMA
     Dosage: 2 DROPS EACH EYE 2 TIMES A DAY, MORNING AND EVENING
     Route: 047

REACTIONS (1)
  - Growth of eyelashes [Not Recovered/Not Resolved]
